FAERS Safety Report 7737660-3 (Version None)
Quarter: 2011Q3

REPORT INFORMATION
  Report Type: 
  Country: None (occurrence: None)
  Receive Date: 20110908
  Receipt Date: 20110906
  Transmission Date: 20111222
  Serious: Yes (Hospitalization)
  Sender: FDA-Public Use
  Company Number: FR-ROXANE LABORATORIES, INC.-2011-RO-01218RO

PATIENT
  Age: 17 Year
  Sex: Female

DRUGS (2)
  1. LOPERAMIDE HCL [Suspect]
  2. TRIMEBUTINE [Suspect]

REACTIONS (4)
  - INTENTIONAL OVERDOSE [None]
  - BLOOD AMYLASE INCREASED [None]
  - LIPASE INCREASED [None]
  - ABDOMINAL PAIN UPPER [None]
